FAERS Safety Report 13272275 (Version 7)
Quarter: 2017Q3

REPORT INFORMATION
  Report Type: Report from Study
  Country: US (occurrence: US)
  Receive Date: 20170227
  Receipt Date: 20170725
  Transmission Date: 20171127
  Serious: Yes (Hospitalization)
  Sender: FDA-Public Use
  Company Number: PHEH2017US005209

PATIENT
  Sex: Female

DRUGS (1)
  1. TASIGNA [Suspect]
     Active Substance: NILOTINIB
     Indication: CHRONIC MYELOID LEUKAEMIA
     Dosage: 150 MG, QD
     Route: 065
     Dates: start: 2014

REACTIONS (5)
  - Hypoacusis [Unknown]
  - Product physical issue [Unknown]
  - Dysphagia [Unknown]
  - Blood potassium decreased [Unknown]
  - Pneumonia [Unknown]
